FAERS Safety Report 17633288 (Version 4)
Quarter: 2021Q1

REPORT INFORMATION
  Report Type: Spontaneous
  Country: US (occurrence: US)
  Receive Date: 20200406
  Receipt Date: 20210211
  Transmission Date: 20210419
  Serious: Yes (Other)
  Sender: FDA-Public Use
  Company Number: US-GILEAD-2020-0457043

PATIENT
  Age: 57 Year
  Sex: Male
  Weight: 64.4 kg

DRUGS (31)
  1. NEVIRAPINE. [Concomitant]
     Active Substance: NEVIRAPINE
  2. AZELASTINE. [Concomitant]
     Active Substance: AZELASTINE HYDROCHLORIDE
  3. OXYCODONE [Concomitant]
     Active Substance: OXYCODONE
  4. ATRIPLA [Concomitant]
     Active Substance: EFAVIRENZ\EMTRICITABINE\TENOFOVIR DISOPROXIL FUMARATE
     Indication: HIV INFECTION
     Dosage: UNK, TOOK ONE DOSE
     Dates: start: 2010, end: 2010
  5. VALACYCLOVIR [Concomitant]
     Active Substance: VALACYCLOVIR HYDROCHLORIDE
  6. CYCLOBENZAPRINE. [Concomitant]
     Active Substance: CYCLOBENZAPRINE
  7. BACTRIM [Concomitant]
     Active Substance: SULFAMETHOXAZOLE\TRIMETHOPRIM
  8. NAPROXEN. [Concomitant]
     Active Substance: NAPROXEN
  9. OLOPATADINE. [Concomitant]
     Active Substance: OLOPATADINE
  10. SULFAMETHIZOLE;TRIMETHOPRIM [Concomitant]
     Active Substance: SULFAMETHIZOLE\TRIMETHOPRIM
  11. PREDNISONE. [Concomitant]
     Active Substance: PREDNISONE
  12. DESCOVY [Concomitant]
     Active Substance: EMTRICITABINE\TENOFOVIR ALAFENAMIDE FUMARATE
  13. ALENDRONATE [Concomitant]
     Active Substance: ALENDRONATE SODIUM
  14. MONTELUKAST [Concomitant]
     Active Substance: MONTELUKAST SODIUM
  15. AMOXICILLIN. [Concomitant]
     Active Substance: AMOXICILLIN
  16. LEVOFLOXACIN. [Concomitant]
     Active Substance: LEVOFLOXACIN
  17. TESTOSTERONE. [Concomitant]
     Active Substance: TESTOSTERONE
  18. ACETAMINOPHEN. [Concomitant]
     Active Substance: ACETAMINOPHEN
  19. DICLOFENAC [Concomitant]
     Active Substance: DICLOFENAC
  20. TRUVADA [Suspect]
     Active Substance: EMTRICITABINE\TENOFOVIR DISOPROXIL FUMARATE
     Indication: HIV INFECTION
     Dosage: UNK
     Route: 065
     Dates: start: 2010, end: 20190303
  21. ATORVASTATIN [Concomitant]
     Active Substance: ATORVASTATIN
  22. VIREAD [Suspect]
     Active Substance: TENOFOVIR DISOPROXIL FUMARATE
     Indication: HIV INFECTION
     Dosage: UNK
     Route: 065
     Dates: start: 2001, end: 20100303
  23. COMPLERA [Concomitant]
     Active Substance: EMTRICITABINE\RILPIVIRINE HYDROCHLORIDE\TENOFOVIR DISOPROXIL FUMARATE
     Indication: HIV INFECTION
     Dosage: UNK, TOOK FOR ONE WEEK
     Route: 048
     Dates: start: 201001, end: 201001
  24. HARVONI [Concomitant]
     Active Substance: LEDIPASVIR\SOFOSBUVIR
  25. ROSUVASTATIN. [Concomitant]
     Active Substance: ROSUVASTATIN
  26. CEPHALEXIN [CEFALEXIN] [Concomitant]
     Active Substance: CEPHALEXIN
  27. FLUVIRIN [INFLUENZA VACCINE INACT SAG 3V] [Concomitant]
  28. ASPIRIN [ACETYLSALICYLIC ACID] [Concomitant]
     Active Substance: ASPIRIN
  29. BENZONATATE. [Concomitant]
     Active Substance: BENZONATATE
  30. IBUPROFEN. [Concomitant]
     Active Substance: IBUPROFEN
  31. PENICILLIN [PENICILLIN NOS] [Concomitant]
     Active Substance: PENICILLIN

REACTIONS (7)
  - Osteopenia [Recovered/Resolved]
  - Osteoporosis [Not Recovered/Not Resolved]
  - Osteoporosis [Not Recovered/Not Resolved]
  - Rib fracture [Unknown]
  - Bone density decreased [Unknown]
  - Ankle fracture [Unknown]
  - Loss of personal independence in daily activities [Not Recovered/Not Resolved]

NARRATIVE: CASE EVENT DATE: 201404
